FAERS Safety Report 6378975-3 (Version None)
Quarter: 2009Q3

REPORT INFORMATION
  Report Type: 
  Country: None (occurrence: None)
  Receive Date: 20090928
  Receipt Date: 20090917
  Transmission Date: 20100115
  Serious: Yes (Other)
  Sender: FDA-Public Use
  Company Number: US-JNJCH-2009025514

PATIENT
  Age: 80 Year
  Sex: Male
  Weight: 102.1 kg

DRUGS (5)
  1. BENADRYL ALLERGY DYE-FREE [Suspect]
     Indication: RASH
     Dosage: TEXT:2 SOFTGELS DAILY
     Route: 048
  2. INSULIN [Concomitant]
     Indication: DIABETES MELLITUS
     Dosage: TEXT:25 MG THREE TIME DAILY
     Route: 065
  3. LANTUS [Concomitant]
     Indication: DIABETES MELLITUS
     Dosage: TEXT:26 UNITS ONCE DAILY
     Route: 065
  4. METFORMIN HCL [Concomitant]
     Indication: DIABETES MELLITUS
     Dosage: TEXT:UNKNOWN ONCE DAILY
     Route: 065
  5. GLIPIZIDE [Concomitant]
     Indication: DIABETES MELLITUS
     Dosage: TEXT:UNKNOWN ONCE DAILY
     Route: 065

REACTIONS (2)
  - OFF LABEL USE [None]
  - VISUAL ACUITY REDUCED [None]
